FAERS Safety Report 7227066-8 (Version None)
Quarter: 2011Q1

REPORT INFORMATION
  Report Type: 
  Country: None (occurrence: None)
  Receive Date: 20110111
  Receipt Date: 20110111
  Transmission Date: 20110831
  Serious: Yes (Hospitalization)
  Sender: FDA-Public Use
  Company Number: None

PATIENT
  Sex: Female
  Weight: 210 kg

DRUGS (1)
  1. ALDARA [Suspect]
     Indication: BASAL CELL CARCINOMA
     Dosage: 2X WEEK EVERY 4 DAYS FACE ; 1 X WEEK EVERY 7 DAY FACE
     Dates: start: 20070916

REACTIONS (7)
  - SKIN EROSION [None]
  - SCAR [None]
  - PAIN [None]
  - ERYTHEMA [None]
  - HEADACHE [None]
  - BURNING SENSATION [None]
  - PURULENCE [None]
